FAERS Safety Report 5805771-5 (Version None)
Quarter: 2008Q3

REPORT INFORMATION
  Report Type: 
  Country: None (occurrence: None)
  Receive Date: 20080708
  Receipt Date: 20080708
  Transmission Date: 20090109
  Serious: Yes (Death, Hospitalization)
  Sender: FDA-Public Use
  Company Number: None

PATIENT
  Sex: Male
  Weight: 55.8 kg

DRUGS (2)
  1. CYTARABINE [Suspect]
     Dosage: 40000 MG
  2. L-ASPARAGINASE [Suspect]
     Dosage: 20000 UNIT

REACTIONS (18)
  - ACTIVATED PARTIAL THROMBOPLASTIN TIME PROLONGED [None]
  - BLOOD CULTURE POSITIVE [None]
  - BRAIN INJURY [None]
  - BRAIN STEM HAEMORRHAGE [None]
  - CARDIO-RESPIRATORY ARREST [None]
  - CLOSTRIDIAL INFECTION [None]
  - CONVULSION [None]
  - DIARRHOEA [None]
  - FIBRIN D DIMER INCREASED [None]
  - HAEMOGLOBIN DECREASED [None]
  - INTERNATIONAL NORMALISED RATIO INCREASED [None]
  - NEUTROPENIA [None]
  - PROTHROMBIN TIME PROLONGED [None]
  - PYREXIA [None]
  - SEPSIS [None]
  - SUBARACHNOID HAEMORRHAGE [None]
  - THROMBOCYTOPENIA [None]
  - UNRESPONSIVE TO STIMULI [None]
